FAERS Safety Report 25625616 (Version 1)
Quarter: 2025Q3

REPORT INFORMATION
  Report Type: Other
  Country: CN (occurrence: CN)
  Receive Date: 20250731
  Receipt Date: 20250731
  Transmission Date: 20251020
  Serious: Yes (Life-Threatening, Other)
  Sender: LYNE LABORATORIES
  Company Number: CN-Lyne Laboratories Inc.-2181572

PATIENT
  Age: 61 Year
  Sex: Female

DRUGS (14)
  1. DEXAMETHASONE [Suspect]
     Active Substance: DEXAMETHASONE
     Indication: Plasma cell myeloma
  2. CYCLOPHOSPHAMIDE [Suspect]
     Active Substance: CYCLOPHOSPHAMIDE
     Dates: start: 2023
  3. BORTEZOMIB [Concomitant]
     Active Substance: BORTEZOMIB
  4. IBUPROFEN [Concomitant]
     Active Substance: IBUPROFEN
  5. TOCILIZUMAB [Concomitant]
     Active Substance: TOCILIZUMAB
  6. POMALIDOMIDE [Concomitant]
     Active Substance: POMALIDOMIDE
  7. FLUDARABINE [Concomitant]
     Active Substance: FLUDARABINE PHOSPHATE
  8. LENALIDOMIDE [Concomitant]
     Active Substance: LENALIDOMIDE
  9. IXAZOMIB [Concomitant]
     Active Substance: IXAZOMIB
  10. DOXORUBICIN HYDROCHLORIDE [Concomitant]
     Active Substance: DOXORUBICIN HYDROCHLORIDE
  11. TOLODODEKIN ALFA [Suspect]
     Active Substance: TOLODODEKIN ALFA
     Dates: start: 2023
  12. ETOPOSIDE [Suspect]
     Active Substance: ETOPOSIDE
     Dates: start: 2023
  13. CARFILZOMIB [Suspect]
     Active Substance: CARFILZOMIB
  14. CISPLATIN [Suspect]
     Active Substance: CISPLATIN
     Dates: start: 2023

REACTIONS (5)
  - Neutropenia [Recovered/Resolved]
  - Product use in unapproved indication [Unknown]
  - Therapy partial responder [Unknown]
  - Drug intolerance [Unknown]
  - Febrile neutropenia [Recovered/Resolved]
